FAERS Safety Report 6808768-1 (Version None)
Quarter: 2010Q2

REPORT INFORMATION
  Report Type: 
  Country: None (occurrence: None)
  Receive Date: 20100630
  Receipt Date: 20090929
  Transmission Date: 20101027
  Serious: No
  Sender: FDA-Public Use
  Company Number: US-PFIZER INC-2009254685

PATIENT

DRUGS (6)
  1. VIAGRA [Suspect]
  2. LOPRESSOR [Interacting]
  3. LASIX [Interacting]
  4. VALSARTAN [Interacting]
  5. MONTELUKAST SODIUM [Interacting]
  6. MUCINEX [Interacting]
     Dosage: 50 MG, UNK

REACTIONS (5)
  - DRUG EFFECT PROLONGED [None]
  - DRUG INTERACTION [None]
  - DYSPNOEA [None]
  - FLUSHING [None]
  - PRODUCTIVE COUGH [None]
